FAERS Safety Report 7494492-1 (Version None)
Quarter: 2011Q2

REPORT INFORMATION
  Report Type: 
  Country: None (occurrence: None)
  Receive Date: 20110520
  Receipt Date: 20110512
  Transmission Date: 20111010
  Serious: Yes (Hospitalization)
  Sender: FDA-Public Use
  Company Number: FR-BAXTER-2011BH016158

PATIENT
  Age: 42 Year
  Sex: Male
  Weight: 64 kg

DRUGS (8)
  1. KIDROLASE [Suspect]
     Indication: NON-HODGKIN'S LYMPHOMA
     Route: 042
     Dates: start: 20101027, end: 20101031
  2. CERUBIDINE [Suspect]
     Indication: NON-HODGKIN'S LYMPHOMA
     Route: 065
     Dates: start: 20101020, end: 20101104
  3. METHOTREXATE [Suspect]
     Indication: NON-HODGKIN'S LYMPHOMA
     Route: 038
     Dates: start: 20101020, end: 20101027
  4. CYTARABINE [Suspect]
     Indication: NON-HODGKIN'S LYMPHOMA
     Route: 038
     Dates: start: 20101020, end: 20101027
  5. CYCLOPHOSPHAMIDE [Suspect]
     Indication: NON-HODGKIN'S LYMPHOMA
     Route: 042
     Dates: start: 20101020, end: 20101104
  6. VINCRISTINE SULFATE [Suspect]
     Indication: NON-HODGKIN'S LYMPHOMA
     Route: 065
     Dates: start: 20101020, end: 20101103
  7. ACUPAN [Concomitant]
     Indication: HEADACHE
     Route: 042
     Dates: start: 20101104, end: 20101105
  8. METHYLPREDNISOLONE [Suspect]
     Indication: NON-HODGKIN'S LYMPHOMA
     Route: 065
     Dates: start: 20101020, end: 20101102

REACTIONS (1)
  - CEREBRAL VENOUS THROMBOSIS [None]
